FAERS Safety Report 5713677-5 (Version None)
Quarter: 2008Q2

REPORT INFORMATION
  Report Type: 
  Country: None (occurrence: None)
  Receive Date: 20080418
  Receipt Date: 20080409
  Transmission Date: 20081010
  Serious: Yes (Death, Hospitalization, Other)
  Sender: FDA-Public Use
  Company Number: 2008-00834

PATIENT
  Age: 68 Year
  Sex: Male

DRUGS (8)
  1. VELCADE [Suspect]
     Indication: MULTIPLE MYELOMA
     Dosage: 1 MG/M2
     Dates: start: 20071112, end: 20071112
  2. DECADRON [Concomitant]
  3. PAMIDRONATE DISODIUM [Concomitant]
  4. LEVOFLOXACIN [Concomitant]
  5. REGLAN [Concomitant]
  6. VICODIN [Concomitant]
  7. PHENERGAN HCL [Concomitant]
  8. THALIDOMIDE [Concomitant]

REACTIONS (2)
  - CEREBRAL HAEMORRHAGE [None]
  - DISEASE COMPLICATION [None]
